FAERS Safety Report 5671875-3 (Version None)
Quarter: 2008Q1

REPORT INFORMATION
  Report Type: 
  Country: None (occurrence: None)
  Receive Date: 20080317
  Receipt Date: 20080317
  Transmission Date: 20080703
  Serious: Yes (Death)
  Sender: FDA-Public Use
  Company Number: None

PATIENT
  Age: 71 Year
  Sex: Male
  Weight: 121.1104 kg

DRUGS (2)
  1. CHANTIX [Suspect]
     Indication: CHRONIC OBSTRUCTIVE PULMONARY DISEASE
     Dosage: 1.0 MG BID PO
     Route: 048
     Dates: start: 20070809, end: 20071219
  2. CHANTIX [Suspect]
     Indication: DRUG ABUSE
     Dosage: 1.0 MG BID PO
     Route: 048
     Dates: start: 20070809, end: 20071219

REACTIONS (1)
  - COMPLETED SUICIDE [None]
